FAERS Safety Report 4331971-X (Version None)
Quarter: 2004Q2

REPORT INFORMATION
  Report Type: 
  Country: None (occurrence: None)
  Receive Date: 20040405
  Receipt Date: 20030814
  Transmission Date: 20050107
  Serious: No
  Sender: FDA-Public Use
  Company Number: US-GLAXOSMITHKLINE-A0421204A

PATIENT
  Age: 48 Year
  Sex: Female

DRUGS (5)
  1. SEREVENT [Suspect]
     Indication: ASTHMA
     Dosage: 1MG TWICE PER DAY
     Route: 055
     Dates: start: 20030627, end: 20030814
  2. ATROVENT [Concomitant]
  3. BECONASE [Concomitant]
  4. PRILOSEC [Concomitant]
  5. CELEXA [Concomitant]

REACTIONS (1)
  - LACTOSE INTOLERANCE [None]
